FAERS Safety Report 15414182 (Version 1)
Quarter: 2018Q3

REPORT INFORMATION
  Report Type: Report from Study
  Country: US (occurrence: US)
  Receive Date: 20180921
  Receipt Date: 20180921
  Transmission Date: 20181010
  Serious: Yes (Other)
  Sender: FDA-Public Use
  Company Number: US-AMGEN-USASL2018130500

PATIENT
  Age: 45 Year
  Sex: Female

DRUGS (2)
  1. METHOTREXATE. [Concomitant]
     Active Substance: METHOTREXATE
     Dosage: UNK
  2. ENBREL [Suspect]
     Active Substance: ETANERCEPT
     Indication: PSORIATIC ARTHROPATHY
     Dosage: 50 MG, QWK
     Route: 065
     Dates: start: 201004

REACTIONS (9)
  - Cholecystectomy [Unknown]
  - Allergy to animal [Unknown]
  - Abdominal pain upper [Not Recovered/Not Resolved]
  - Pharyngitis streptococcal [Unknown]
  - Uterine dilation and curettage [Unknown]
  - Appendicectomy [Unknown]
  - Allergy to plants [Unknown]
  - Hysterectomy [Unknown]
  - Biopsy breast [Unknown]

NARRATIVE: CASE EVENT DATE: 2014
